FAERS Safety Report 10100433 (Version 2)
Quarter: 2014Q2

REPORT INFORMATION
  Report Type: Report from Study
  Country: JP (occurrence: JP)
  Receive Date: 20140423
  Receipt Date: 20140630
  Transmission Date: 20141212
  Serious: Yes (Death, Disabling, Other)
  Sender: FDA-Public Use
  Company Number: JP-ALLERGAN-1408104US

PATIENT
  Age: 24 Year
  Sex: Male

DRUGS (6)
  1. BOTULINUM TOXIN TYPE A - GENERAL (9060X) [Suspect]
     Indication: TORTICOLLIS
     Dosage: 215 UNITS, SINGLE
     Dates: start: 20140123, end: 20140123
  2. BOTULINUM TOXIN TYPE A - GENERAL (9060X) [Suspect]
     Dosage: 200 UNITS, SINGLE
     Dates: start: 20130123, end: 20130123
  3. BOTULINUM TOXIN TYPE A - GENERAL (9060X) [Suspect]
     Dosage: UNK, SINGLE
     Route: 030
     Dates: start: 20080229, end: 20080229
  4. EPENARD [Concomitant]
     Indication: TORTICOLLIS
     Dosage: 50 MG, TID
     Route: 048
  5. DEPAS [Concomitant]
     Indication: TORTICOLLIS
     Dosage: 1 MG, BID
     Route: 048
  6. MYONAL [Concomitant]
     Indication: TORTICOLLIS
     Dosage: 50 MG, TID
     Route: 048
     Dates: start: 20131004

REACTIONS (7)
  - Oxygen saturation decreased [Unknown]
  - Mouth breathing [Unknown]
  - Respiration abnormal [Unknown]
  - Bronchial obstruction [Unknown]
  - Hypotonia [Unknown]
  - Respiratory failure [Fatal]
  - Respiratory failure [Recovered/Resolved with Sequelae]
